FAERS Safety Report 5009829-2 (Version None)
Quarter: 2006Q2

REPORT INFORMATION
  Report Type: 
  Country: None (occurrence: None)
  Receive Date: 20060523
  Receipt Date: 20060523
  Transmission Date: 20061013
  Serious: No
  Sender: FDA-Public Use
  Company Number: None

PATIENT
  Age: 76 Year
  Sex: Male

DRUGS (2)
  1. COUMADIN [Suspect]
     Indication: PULMONARY EMBOLISM
  2. ASPIRIN [Suspect]

REACTIONS (6)
  - CARDIAC FAILURE CONGESTIVE [None]
  - HAEMATURIA [None]
  - MUSCULAR WEAKNESS [None]
  - PENILE HAEMORRHAGE [None]
  - POLYNEUROPATHY [None]
  - PULMONARY EMBOLISM [None]
